FAERS Safety Report 9486193 (Version 2)
Quarter: 2013Q4

REPORT INFORMATION
  Report Type: Spontaneous
  Country: US (occurrence: US)
  Receive Date: 20130829
  Receipt Date: 20131015
  Transmission Date: 20140711
  Serious: No
  Sender: FDA-Public Use
  Company Number: US-PFIZER INC-2013244106

PATIENT
  Sex: Male

DRUGS (7)
  1. DEPO-TESTOSTERONE [Suspect]
     Indication: BLOOD TESTOSTERONE DECREASED
     Dosage: 200 MG, EVERY 14 DAYS
     Dates: start: 20120302
  2. DEPO-TESTOSTERONE [Suspect]
     Dosage: 200 MG, EVERY 21DAYS
  3. AMLODIPINE [Concomitant]
     Indication: HYPERTENSION
     Dosage: UNK
  4. QUINAPRIL [Concomitant]
     Indication: HYPERTENSION
     Dosage: UNK
  5. TERAZOSIN [Concomitant]
     Indication: HYPERTENSION
     Dosage: UNK
  6. FUROSEMIDE [Concomitant]
     Indication: HYPERTENSION
     Dosage: UNK
  7. WARFARIN [Concomitant]
     Indication: ANTICOAGULANT THERAPY
     Dosage: 5 MG, UNK

REACTIONS (1)
  - Blood testosterone abnormal [Unknown]
